FAERS Safety Report 4950981-2 (Version None)
Quarter: 2006Q1

REPORT INFORMATION
  Report Type: 
  Country: None (occurrence: None)
  Receive Date: 20060315
  Receipt Date: 20051229
  Transmission Date: 20060701
  Serious: Yes (Hospitalization, Other)
  Sender: FDA-Public Use
  Company Number: CA_050708421

PATIENT
  Age: 19 Year
  Sex: Male
  Weight: 95.5 kg

DRUGS (16)
  1. ZYPREXA [Suspect]
     Indication: SCHIZOAFFECTIVE DISORDER
     Dosage: 2.5 MG EACH EVENING ORAL
     Route: 048
     Dates: start: 20020213
  2. HUMULIN N [Suspect]
     Dosage: 37 U EACH MORNING, SUBCUTANEOUS
     Route: 058
     Dates: start: 20030520, end: 20030101
  3. HUMALOG [Suspect]
     Dosage: 20 U EACH MORNING, SUBCUTANEOUS
     Route: 058
     Dates: start: 20030520, end: 20030101
  4. EFFEXOR XR [Concomitant]
  5. GLYCERIN (GLYCEROL) [Concomitant]
  6. TYLENOL/USA/(PARACETAMOL) [Concomitant]
  7. DEMEROL [Concomitant]
  8. GRAVOL TAB [Concomitant]
  9. FLAGYL [Concomitant]
  10. CIPROFLOXACIN HCL [Concomitant]
  11. RISPERIDONE [Concomitant]
  12. SEROQUEL [Concomitant]
  13. CELEXA [Concomitant]
  14. MINOCYCLINE HCL [Concomitant]
  15. ADVIL [Concomitant]
  16. DEXAMETHASONE TAB [Concomitant]

REACTIONS (42)
  - ADVERSE DRUG REACTION [None]
  - AGITATION [None]
  - BLOOD PRESSURE INCREASED [None]
  - BLOOD PRESSURE SYSTOLIC INCREASED [None]
  - CONSTIPATION [None]
  - CYSTIC FIBROSIS [None]
  - DEPRESSION [None]
  - DIABETES MELLITUS [None]
  - DIABETIC KETOACIDOSIS [None]
  - DYSURIA [None]
  - FATIGUE [None]
  - GLUCOSE TOLERANCE IMPAIRED [None]
  - HAEMATOCRIT DECREASED [None]
  - HAEMOGLOBIN DECREASED [None]
  - HEADACHE [None]
  - HEART RATE INCREASED [None]
  - HEPATIC STEATOSIS [None]
  - HYPERGLYCAEMIA [None]
  - HYPERSOMNIA [None]
  - HYPOGLYCAEMIA [None]
  - INCORRECT DOSE ADMINISTERED [None]
  - INSOMNIA [None]
  - LABORATORY TEST INTERFERENCE [None]
  - LETHARGY [None]
  - NAIL INFECTION [None]
  - NEUTROPHIL COUNT ABNORMAL [None]
  - OVERDOSE [None]
  - PANCREATIC ATROPHY [None]
  - PANCREATIC INSUFFICIENCY [None]
  - PANCREATITIS [None]
  - POLYDIPSIA [None]
  - POLYURIA [None]
  - POST PROCEDURAL COMPLICATION [None]
  - PSEUDOCYST [None]
  - PYREXIA [None]
  - RED CELL DISTRIBUTION WIDTH INCREASED [None]
  - TOOTH EXTRACTION [None]
  - TREATMENT NONCOMPLIANCE [None]
  - TREMOR [None]
  - URINARY RETENTION [None]
  - WEIGHT INCREASED [None]
  - WHITE BLOOD CELL COUNT INCREASED [None]
